FAERS Safety Report 20373000 (Version 2)
Quarter: 2022Q1

REPORT INFORMATION
  Report Type: Spontaneous
  Country: US (occurrence: US)
  Receive Date: 20220125
  Receipt Date: 20220209
  Transmission Date: 20220423
  Serious: Yes (Hospitalization)
  Sender: FDA-Public Use
  Company Number: US-Global Blood Therapeutics Inc-US-GBT-22-00196

PATIENT
  Age: 40 Year
  Sex: Male

DRUGS (2)
  1. OXBRYTA [Suspect]
     Active Substance: VOXELOTOR
     Indication: Sickle cell disease
     Route: 048
     Dates: start: 20200601
  2. OXBRYTA [Suspect]
     Active Substance: VOXELOTOR
     Dosage: ONE OR TWO TABS EVERY DAY AT DIFFERENT TIMES
     Route: 048
     Dates: start: 20220121

REACTIONS (6)
  - Sickle cell anaemia with crisis [Unknown]
  - Infusion [Unknown]
  - Somnolence [Unknown]
  - Fatigue [Unknown]
  - Diarrhoea [Unknown]
  - Intentional product misuse [Unknown]

NARRATIVE: CASE EVENT DATE: 20211202
